FAERS Safety Report 21158243 (Version 7)
Quarter: 2023Q1

REPORT INFORMATION
  Report Type: Spontaneous
  Country: GB (occurrence: None)
  Receive Date: 20220801
  Receipt Date: 20230307
  Transmission Date: 20230418
  Serious: Yes (Hospitalization, Other)
  Sender: FDA-Public Use
  Company Number: GB-ROCHE-3149724

PATIENT
  Age: 73 Year
  Sex: Female

DRUGS (1)
  1. HERCEPTIN [Suspect]
     Active Substance: TRASTUZUMAB
     Indication: Breast cancer
     Dosage: CYCLE 153
     Route: 058
     Dates: start: 20170301

REACTIONS (14)
  - Pulmonary thrombosis [Unknown]
  - Deep vein thrombosis [Unknown]
  - Synovial cyst [Unknown]
  - Dyspnoea [Unknown]
  - Chest discomfort [Unknown]
  - Fatigue [Unknown]
  - Thrombosis [Unknown]
  - Pain [Unknown]
  - Benign joint neoplasm [Unknown]
  - Restless legs syndrome [Unknown]
  - Insomnia [Unknown]
  - Haemoglobin decreased [Recovered/Resolved]
  - Fatigue [Recovered/Resolved]
  - Dyspnoea [Recovered/Resolved]
